FAERS Safety Report 22020031 (Version 1)
Quarter: 2023Q1

REPORT INFORMATION
  Report Type: Spontaneous
  Country: US (occurrence: None)
  Receive Date: 20230217
  Receipt Date: 20230217
  Transmission Date: 20230418
  Serious: Yes (Other)
  Sender: FDA-Public Use
  Company Number: None

PATIENT
  Age: 52 Year
  Sex: Female

DRUGS (2)
  1. ARTIFICIAL TEARS LUBRICANT EYE DROPS (CARBOXYMETHYLCELLULOSE SODIUM) [Suspect]
     Active Substance: CARBOXYMETHYLCELLULOSE SODIUM
     Indication: Dry eye
     Dosage: OTHER QUANTITY : 2 OUNCE(S);?FREQUENCY : TWICE A DAY;?
     Route: 047
     Dates: start: 20221010, end: 20221210
  2. LISINOPRIL [Concomitant]
     Active Substance: LISINOPRIL

REACTIONS (8)
  - Eyelid margin crusting [None]
  - Ear infection [None]
  - Pain [None]
  - Tinnitus [None]
  - Eye swelling [None]
  - Therapy non-responder [None]
  - Ear discomfort [None]
  - Eye discharge [None]

NARRATIVE: CASE EVENT DATE: 20221020
